FAERS Safety Report 24976974 (Version 2)
Quarter: 2025Q1

REPORT INFORMATION
  Report Type: Spontaneous
  Country: IN (occurrence: IN)
  Receive Date: 20250217
  Receipt Date: 20250224
  Transmission Date: 20250408
  Serious: Yes (Other)
  Sender: TORRENT PHARMA INC.
  Company Number: IN-TORRENT-00003841

PATIENT
  Age: 35 Year
  Sex: Female

DRUGS (1)
  1. OLANZAPINE [Suspect]
     Active Substance: OLANZAPINE
     Indication: Schizophrenia
     Route: 048

REACTIONS (5)
  - Withdrawal syndrome [Unknown]
  - Maternal exposure during pregnancy [Unknown]
  - Treatment noncompliance [Unknown]
  - Psychotic symptom [Unknown]
  - Therapy interrupted [Unknown]
